FAERS Safety Report 6651708-9 (Version None)
Quarter: 2010Q1

REPORT INFORMATION
  Report Type: 
  Country: None (occurrence: None)
  Receive Date: 20100322
  Receipt Date: 20100305
  Transmission Date: 20100710
  Serious: Yes (Hospitalization)
  Sender: FDA-Public Use
  Company Number: DSA_42765_2010

PATIENT
  Age: 43 Year
  Sex: Male

DRUGS (6)
  1. ENALAPRIL MALEATE W/HYDROCHLOROTHAZIDE [Suspect]
     Indication: HYPERTENSION
     Dosage: DF ORAL
     Route: 048
     Dates: start: 20090319, end: 20090507
  2. ALLOPURINOL [Suspect]
     Indication: HYPERURICAEMIA
     Dosage: 300 MG ORAL
     Route: 048
     Dates: start: 20090319, end: 20090507
  3. IPRATROPIUM BROMIDE [Concomitant]
  4. MEPROBAMATE [Concomitant]
  5. TERBUTALINE SULATE [Concomitant]
  6. TIOTROPIUM BROMIDE [Concomitant]

REACTIONS (6)
  - BLOOD CREATININE INCREASED [None]
  - CYTOLYTIC HEPATITIS [None]
  - DERMATITIS EXFOLIATIVE [None]
  - DRUG RASH WITH EOSINOPHILIA AND SYSTEMIC SYMPTOMS [None]
  - HYPERTHERMIA [None]
  - LYMPHADENOPATHY [None]
